FAERS Safety Report 6762928-7 (Version None)
Quarter: 2010Q2

REPORT INFORMATION
  Report Type: 
  Country: None (occurrence: None)
  Receive Date: 20100609
  Receipt Date: 20100602
  Transmission Date: 20101027
  Serious: Yes (Hospitalization, Other)
  Sender: FDA-Public Use
  Company Number: US-PURDUE-USA-2009-0038343

PATIENT
  Age: 24 Year
  Sex: Male

DRUGS (1)
  1. OXYCONTIN [Suspect]
     Indication: DRUG ABUSE
     Dosage: UNK
     Route: 042

REACTIONS (6)
  - CONVULSION [None]
  - DRUG ABUSE [None]
  - DRUG ABUSER [None]
  - DRUG DEPENDENCE [None]
  - OVERDOSE [None]
  - SUICIDAL IDEATION [None]
